FAERS Safety Report 10382821 (Version 3)
Quarter: 2015Q2

REPORT INFORMATION
  Report Type: Report from Study
  Country: US (occurrence: US)
  Receive Date: 20140813
  Receipt Date: 20150511
  Transmission Date: 20150821
  Serious: Yes (Hospitalization)
  Sender: FDA-Public Use
  Company Number: US-SA-2013SA116246

PATIENT
  Age: 55 Year
  Sex: Female

DRUGS (1)
  1. FABRAZYME [Suspect]
     Active Substance: AGALSIDASE BETA
     Indication: FABRY^S DISEASE
     Route: 042
     Dates: start: 20040429

REACTIONS (10)
  - Peripheral swelling [Unknown]
  - Skin discolouration [Unknown]
  - Viral infection [Unknown]
  - Bronchitis [Unknown]
  - Appendicitis perforated [Unknown]
  - Pyrexia [Recovered/Resolved]
  - Pneumothorax [Unknown]
  - Pain in extremity [Unknown]
  - Cardiac failure congestive [Unknown]
  - Post procedural complication [Unknown]

NARRATIVE: CASE EVENT DATE: 2013
